FAERS Safety Report 7610733-1 (Version None)
Quarter: 2011Q3

REPORT INFORMATION
  Report Type: 
  Country: None (occurrence: None)
  Receive Date: 20110715
  Receipt Date: 20110706
  Transmission Date: 20111222
  Serious: Yes (Other)
  Sender: FDA-Public Use
  Company Number: US-ELI_LILLY_AND_COMPANY-US201107002608

PATIENT
  Sex: Male

DRUGS (3)
  1. HUMALOG MIX 50/50 [Suspect]
     Dosage: 34 U, EACH EVENING
     Dates: start: 20090101
  2. HUMALOG MIX 50/50 [Suspect]
     Indication: DIABETES MELLITUS
     Dosage: 20 U, EACH MORNING
     Dates: start: 20090101
  3. METFORMIN HCL [Concomitant]
     Dosage: UNK

REACTIONS (5)
  - DRUG DOSE OMISSION [None]
  - INTENTIONAL DRUG MISUSE [None]
  - CHRONIC LEUKAEMIA [None]
  - BLOOD GLUCOSE INCREASED [None]
  - STRESS [None]
